FAERS Safety Report 21988984 (Version 2)
Quarter: 2023Q1

REPORT INFORMATION
  Report Type: Spontaneous
  Country: ES (occurrence: ES)
  Receive Date: 20230214
  Receipt Date: 20230217
  Transmission Date: 20230418
  Serious: Yes (Other)
  Sender: FDA-Public Use
  Company Number: None

PATIENT
  Age: 2 Year
  Sex: Male
  Weight: 13 kg

DRUGS (3)
  1. SINGULAIR [Suspect]
     Active Substance: MONTELUKAST SODIUM
     Indication: Bronchospasm
     Dosage: 1 SACHET/24H (28 SACHETS)
     Route: 048
     Dates: start: 20221221, end: 20221231
  2. POLARAMINE [Concomitant]
     Active Substance: DEXCHLORPHENIRAMINE MALEATE
     Dosage: 2ML/24H (STRENGTH: 0.4 MG/ML, 1 BOTTLE OF 60 ML)
     Route: 048
     Dates: start: 20221221
  3. SERETIDE [Concomitant]
     Active Substance: FLUTICASONE PROPIONATE\SALMETEROL XINAFOATE
     Indication: Bronchiolitis
     Dosage: 2 PUF/12H; (1 INHALER OF 120 DOSES; SUSPENSION FOR INHALATION IN A PRESURIZED INHALER)
     Dates: start: 20221221

REACTIONS (6)
  - Aggression [Recovered/Resolved]
  - Irritability [Recovered/Resolved]
  - Tic [Recovered/Resolved]
  - Restlessness [Recovered/Resolved]
  - Sleep disorder [Recovered/Resolved]
  - Anxiety [Recovered/Resolved]

NARRATIVE: CASE EVENT DATE: 20221231
